FAERS Safety Report 21444448 (Version 3)
Quarter: 2022Q4

REPORT INFORMATION
  Report Type: Spontaneous
  Country: US (occurrence: US)
  Receive Date: 20221012
  Receipt Date: 20221116
  Transmission Date: 20230113
  Serious: No
  Sender: FDA-Public Use
  Company Number: US-JNJFOC-20221008266

PATIENT
  Age: 12 Year
  Sex: Female
  Weight: 75.818 kg

DRUGS (2)
  1. STELARA [Suspect]
     Active Substance: USTEKINUMAB
     Indication: Crohn^s disease
     Route: 058
     Dates: start: 202110
  2. STELARA [Suspect]
     Active Substance: USTEKINUMAB

REACTIONS (3)
  - Product dose omission issue [Unknown]
  - Product container issue [Unknown]
  - Off label use [Unknown]

NARRATIVE: CASE EVENT DATE: 20211001
